FAERS Safety Report 16343324 (Version 1)
Quarter: 2019Q2

REPORT INFORMATION
  Report Type: Report from Study
  Country: GB (occurrence: GB)
  Receive Date: 20190522
  Receipt Date: 20190522
  Transmission Date: 20190711
  Serious: Yes (Death)
  Sender: FDA-Public Use
  Company Number: GB-PFIZER INC-2019210866

PATIENT
  Sex: Male

DRUGS (7)
  1. DARATUMUMAB [Suspect]
     Active Substance: DARATUMUMAB
     Dosage: 16 MG/KG, WEEKLY
     Route: 065
     Dates: start: 20181022, end: 20190107
  2. CYTARABINE. [Suspect]
     Active Substance: CYTARABINE
     Dosage: DOSAGE FORM: UNSPECIFIED
     Route: 065
  3. ASPARAGINASE [Suspect]
     Active Substance: ASPARAGINASE
     Dosage: DOSAGE FORM: UNSPECIFIED
     Route: 065
  4. DARATUMUMAB [Suspect]
     Active Substance: DARATUMUMAB
     Dosage: 16 MG/KG, UNK
     Route: 065
     Dates: start: 20190121
  5. DARATUMUMAB [Suspect]
     Active Substance: DARATUMUMAB
     Dosage: 16 MG/KG, WEEKLY
     Route: 065
     Dates: start: 20190128
  6. VINBLASTINE [Suspect]
     Active Substance: VINBLASTINE
     Dosage: DOSAGE FORM: UNSPECIFIED
     Route: 065
  7. CYCLOPHOSPHAMIDE. [Suspect]
     Active Substance: CYCLOPHOSPHAMIDE
     Dosage: DOSAGE FORM: UNSPECIFIED
     Route: 065

REACTIONS (2)
  - Mucormycosis [Fatal]
  - Neutropenia [Fatal]

NARRATIVE: CASE EVENT DATE: 2019
